FAERS Safety Report 15231883 (Version 1)
Quarter: 2018Q3

REPORT INFORMATION
  Report Type: Other
  Country: AU (occurrence: AU)
  Receive Date: 20180802
  Receipt Date: 20180802
  Transmission Date: 20181010
  Serious: Yes (Hospitalization)
  Sender: FDA-Public Use
  Company Number: AU-ACTELION-A-CH2018-176428

PATIENT
  Sex: Male

DRUGS (4)
  1. BOSENTAN. [Suspect]
     Active Substance: BOSENTAN
     Indication: PERSISTENT FOETAL CIRCULATION
     Route: 048
  2. SILDENAFIL. [Concomitant]
     Active Substance: SILDENAFIL
  3. PROSTINE [Concomitant]
     Active Substance: DINOPROSTONE
  4. NITRIC OXIDE. [Concomitant]
     Active Substance: NITRIC OXIDE

REACTIONS (4)
  - Pneumonia staphylococcal [Unknown]
  - Pneumonia klebsiella [Unknown]
  - Sepsis [Unknown]
  - Klebsiella bacteraemia [Unknown]
